FAERS Safety Report 6902339-4 (Version None)
Quarter: 2010Q3

REPORT INFORMATION
  Report Type: 
  Country: None (occurrence: None)
  Receive Date: 20100803
  Receipt Date: 20080513
  Transmission Date: 20110219
  Serious: No
  Sender: FDA-Public Use
  Company Number: US-PFIZER INC-2008042186

PATIENT
  Sex: Female

DRUGS (4)
  1. LYRICA [Suspect]
     Indication: FIBROMYALGIA
     Dates: start: 20080301, end: 20080401
  2. CELEXA [Concomitant]
  3. AMITRIPTYLINE HYDROCHLORIDE [Concomitant]
  4. ROZEREM [Concomitant]

REACTIONS (5)
  - ABDOMINAL PAIN [None]
  - ELEVATED MOOD [None]
  - FATIGUE [None]
  - HYPERSOMNIA [None]
  - WEIGHT INCREASED [None]
